FAERS Safety Report 4425487-X (Version None)
Quarter: 2004Q3

REPORT INFORMATION
  Report Type: 
  Country: None (occurrence: None)
  Receive Date: 20040719
  Receipt Date: 20030613
  Transmission Date: 20050211
  Serious: Yes (Hospitalization)
  Sender: FDA-Public Use
  Company Number: 174414

PATIENT
  Age: 53 Year
  Sex: Female
  Weight: 99.7913 kg

DRUGS (11)
  1. AVONEX [Suspect]
     Indication: MULTIPLE SCLEROSIS
     Dosage: 30  MCG QW IM
     Route: 030
     Dates: start: 19990101
  2. PRINIVIL [Concomitant]
  3. ZOCOR [Concomitant]
  4. ZOLOFT [Concomitant]
  5. LAMICTAL [Concomitant]
  6. GLUCOTROL [Concomitant]
  7. GLUCOPHAGE [Concomitant]
  8. ZANAFLEX [Concomitant]
  9. PEMOLINE [Concomitant]
  10. AMANTADINE HCL [Concomitant]
  11. FAMOTIDINE [Concomitant]

REACTIONS (3)
  - JOINT SWELLING [None]
  - MULTIPLE SCLEROSIS [None]
  - WHEEZING [None]
